FAERS Safety Report 4915933-7 (Version None)
Quarter: 2006Q1

REPORT INFORMATION
  Report Type: 
  Country: None (occurrence: None)
  Receive Date: 20060214
  Receipt Date: 20060125
  Transmission Date: 20060701
  Serious: Yes (Other)
  Sender: FDA-Public Use
  Company Number: US200602000097

PATIENT
  Age: 70 Year
  Sex: Female

DRUGS (2)
  1. FORTEO [Suspect]
     Indication: OSTEOPOROSIS
     Dates: start: 20050627, end: 20051101
  2. FORTEO [Concomitant]

REACTIONS (3)
  - ABDOMINAL PAIN LOWER [None]
  - CHROMATURIA [None]
  - URINARY TRACT OBSTRUCTION [None]
